FAERS Safety Report 8316369 (Version 2)
Quarter: 2013Q1

REPORT INFORMATION
  Report Type: Spontaneous
  Country: US (occurrence: US)
  Receive Date: 20111230
  Receipt Date: 20130101
  Transmission Date: 20140127
  Serious: No
  Sender: FDA-Public Use
  Company Number: US-BIOGENIDEC-2011BI048297

PATIENT
  Sex: Female

DRUGS (1)
  1. TYSABRI [Suspect]
     Indication: MULTIPLE SCLEROSIS
     Route: 042
     Dates: start: 20110819

REACTIONS (6)
  - Diarrhoea [Not Recovered/Not Resolved]
  - Postpartum depression [Not Recovered/Not Resolved]
  - Dyspnoea exertional [Unknown]
  - Palpitations [Unknown]
  - Rash [Not Recovered/Not Resolved]
  - Multiple sclerosis relapse [Recovered/Resolved]
